FAERS Safety Report 23459649 (Version 1)
Quarter: 2024Q1

REPORT INFORMATION
  Report Type: Spontaneous
  Country: US (occurrence: US)
  Receive Date: 20240131
  Receipt Date: 20240131
  Transmission Date: 20240409
  Serious: Yes (Life-Threatening, Hospitalization, Other)
  Sender: FDA-Public Use
  Company Number: US-MLMSERVICE-20240110-4765782-1

PATIENT

DRUGS (6)
  1. COBIMETINIB [Suspect]
     Active Substance: COBIMETINIB
     Indication: Astrocytoma malignant
  2. CYTARABINE [Suspect]
     Active Substance: CYTARABINE
     Indication: Astrocytoma malignant
     Dosage: UNKNOWN
     Route: 037
  3. METHOTREXATE [Suspect]
     Active Substance: METHOTREXATE
     Indication: Astrocytoma malignant
     Dosage: UNKNOWN
     Route: 037
  4. THIOTEPA [Suspect]
     Active Substance: THIOTEPA
     Indication: Astrocytoma malignant
     Dosage: UNKNOWN
     Route: 037
  5. TOPOTECAN [Suspect]
     Active Substance: TOPOTECAN HYDROCHLORIDE
     Indication: Astrocytoma malignant
     Dosage: UNKNOWN
     Route: 037
  6. VEMURAFENIB [Suspect]
     Active Substance: VEMURAFENIB
     Indication: Astrocytoma malignant
     Dosage: UNKNOWN
     Route: 065

REACTIONS (5)
  - Vomiting [Unknown]
  - Dermatitis acneiform [Unknown]
  - Anaemia [Unknown]
  - Neutropenia [Unknown]
  - Nausea [Unknown]
